FAERS Safety Report 9396164 (Version 3)
Quarter: 2013Q4

REPORT INFORMATION
  Report Type: Spontaneous
  Country: IT (occurrence: None)
  Receive Date: 20130708
  Receipt Date: 20131011
  Transmission Date: 20140711
  Serious: Yes (Life-Threatening)
  Sender: FDA-Public Use
  Company Number: AUR-APL-2013-05607

PATIENT
  Age: 79 Year
  Sex: Female

DRUGS (5)
  1. CITALOPRAM (CITALOPRAM) [Suspect]
     Indication: PRODUCT USED FOR UNKNOWN INDICATION
     Dosage: 420 MG, TOTAL, ORAL
     Route: 048
     Dates: start: 20130623, end: 20130623
  2. DIAZEPAM (DIAZEPAM) [Suspect]
     Indication: PRODUCT USED FOR UNKNOWN INDICATION
     Dosage: 150 MG TOTAL, ORAL
     Route: 048
     Dates: start: 20130623, end: 20130623
  3. IBUPROFEN (IBUPROFEN) [Suspect]
     Indication: PRODUCT USED FOR UNKNOWN INDICATION
     Dosage: 4800 MG, TOTAL, ORAL
     Route: 048
     Dates: start: 20130623, end: 20130623
  4. LEXOTAN [Suspect]
     Indication: PRODUCT USED FOR UNKNOWN INDICATION
     Dosage: 7 DOSAGE FORMS,  TOTAL, ORAL
     Route: 048
     Dates: start: 20130623, end: 20130623
  5. TAVOR (LORAZEPAM) [Suspect]
     Indication: PRODUCT USED FOR UNKNOWN INDICATION
     Dosage: 20 DOSAGE FORMS, TOTAL, ORAL
     Route: 048
     Dates: start: 20130623, end: 20130623

REACTIONS (6)
  - Suicide attempt [None]
  - Incorrect dose administered [None]
  - Coma [None]
  - Electrocardiogram QT prolonged [None]
  - Sopor [None]
  - Coma scale abnormal [None]
